FAERS Safety Report 18588158 (Version 1)
Quarter: 2020Q4

REPORT INFORMATION
  Report Type: Spontaneous
  Country: None (occurrence: US)
  Receive Date: 20201207
  Receipt Date: 20201207
  Transmission Date: 20210114
  Serious: No
  Sender: FDA-Public Use
  Company Number: US-PERSON AND COVEY-2100714

PATIENT
  Sex: Female

DRUGS (2)
  1. DAILY FACIAL MOISTURIZER SPF 25 [Suspect]
     Active Substance: AVOBENZONE\HOMOSALATE\OCTINOXATE\OCTOCRYLENE
     Indication: ROSACEA
     Route: 003
     Dates: start: 20201203
  2. VANICREAM DIAPER RASH [Suspect]
     Active Substance: DIMETHICONE\ZINC OXIDE
     Route: 003
     Dates: start: 20201203, end: 20201204

REACTIONS (1)
  - Application site pain [Unknown]

NARRATIVE: CASE EVENT DATE: 20201203
